FAERS Safety Report 21628548 (Version 2)
Quarter: 2022Q4

REPORT INFORMATION
  Report Type: Report from Study
  Country: JP (occurrence: JP)
  Receive Date: 20221122
  Receipt Date: 20221220
  Transmission Date: 20230113
  Serious: Yes (Other)
  Sender: FDA-Public Use
  Company Number: JP-OTSUKA-2022_048592

PATIENT
  Sex: Male
  Weight: 45.6 kg

DRUGS (15)
  1. TOLVAPTAN [Suspect]
     Active Substance: TOLVAPTAN
     Indication: Hyponatraemia
     Dosage: 3.75 MG, QD (MORNING), DAILY DOSING
     Route: 048
     Dates: start: 20220711, end: 20220713
  2. TOLVAPTAN [Suspect]
     Active Substance: TOLVAPTAN
     Indication: Inappropriate antidiuretic hormone secretion
     Dosage: 1.875 MG, QD (MORNING), DAILY DOSING
     Route: 048
     Dates: start: 20220714, end: 20220815
  3. TOLVAPTAN [Suspect]
     Active Substance: TOLVAPTAN
     Dosage: 3.75 MG, QD (MORNING), DAILY DOSING
     Route: 048
     Dates: start: 20220816, end: 20220905
  4. TOLVAPTAN [Suspect]
     Active Substance: TOLVAPTAN
     Dosage: 5.625 MG, QD (MORNING), DAILY DOSING
     Route: 048
     Dates: start: 20220906, end: 20221004
  5. TOLVAPTAN [Suspect]
     Active Substance: TOLVAPTAN
     Dosage: 7.5 MG, QD (MORNING), DAILY DOSING
     Route: 048
     Dates: start: 20221005
  6. DURVALUMAB [Concomitant]
     Active Substance: DURVALUMAB
     Indication: Product used for unknown indication
     Dosage: UNK
     Route: 065
     Dates: start: 20220715, end: 20220715
  7. DURVALUMAB [Concomitant]
     Active Substance: DURVALUMAB
     Dosage: UNK
     Route: 065
     Dates: start: 20220815, end: 20220815
  8. AMRUBICIN HYDROCHLORIDE [Concomitant]
     Active Substance: AMRUBICIN HYDROCHLORIDE
     Indication: Product used for unknown indication
     Dosage: UNK
     Route: 065
     Dates: start: 20220920, end: 20220922
  9. VALSARTAN [Concomitant]
     Active Substance: VALSARTAN
     Indication: Product used for unknown indication
     Dosage: UNK
     Route: 048
  10. AMLODIPINE BESYLATE [Concomitant]
     Active Substance: AMLODIPINE BESYLATE
     Indication: Product used for unknown indication
     Dosage: UNK
     Route: 048
  11. ALLOPURINOL [Concomitant]
     Active Substance: ALLOPURINOL
     Indication: Product used for unknown indication
     Dosage: UNK
     Route: 048
  12. BEZAFIBRATE [Concomitant]
     Active Substance: BEZAFIBRATE
     Indication: Product used for unknown indication
     Dosage: UNK
     Route: 048
  13. VONOPRAZAN FUMARATE [Concomitant]
     Active Substance: VONOPRAZAN FUMARATE
     Indication: Product used for unknown indication
     Dosage: UNK
     Route: 048
  14. CALCIUM CARBONATE\CHOLECALCIFEROL\MAGNESIUM CARBONATE [Concomitant]
     Active Substance: CALCIUM CARBONATE\CHOLECALCIFEROL\MAGNESIUM CARBONATE
     Indication: Product used for unknown indication
     Dosage: UNK
     Route: 048
  15. MIYA-BM [Concomitant]
     Active Substance: CLOSTRIDIUM BUTYRICUM SPORES STRAIN M-55
     Indication: Product used for unknown indication
     Dosage: UNK
     Route: 048

REACTIONS (2)
  - Renal impairment [Not Recovered/Not Resolved]
  - Nocturia [Recovering/Resolving]

NARRATIVE: CASE EVENT DATE: 20220713
